FAERS Safety Report 16926306 (Version 1)
Quarter: 2019Q4

REPORT INFORMATION
  Report Type: Spontaneous
  Country: GB (occurrence: GB)
  Receive Date: 20191016
  Receipt Date: 20191016
  Transmission Date: 20200122
  Serious: Yes (Other)
  Sender: FDA-Public Use
  Company Number: GB-MYLANLABS-2019M1097284

PATIENT
  Age: 56 Year
  Sex: Male
  Weight: 69.85 kg

DRUGS (1)
  1. FEXOFENADINE [Suspect]
     Active Substance: FEXOFENADINE HYDROCHLORIDE
     Indication: SEASONAL ALLERGY
     Dosage: 50 MILLIGRAM, QD
     Route: 048
     Dates: start: 20190409, end: 20190426

REACTIONS (5)
  - Somnolence [Recovered/Resolved]
  - Diarrhoea [Recovered/Resolved]
  - Testicular pain [Recovered/Resolved]
  - Fatigue [Recovered/Resolved]
  - Groin pain [Recovered/Resolved]

NARRATIVE: CASE EVENT DATE: 20190410
